FAERS Safety Report 8373591-6 (Version None)
Quarter: 2012Q2

REPORT INFORMATION
  Report Type: 
  Country: None (occurrence: None)
  Receive Date: 20120521
  Receipt Date: 20120511
  Transmission Date: 20120825
  Serious: Yes (Hospitalization)
  Sender: FDA-Public Use
  Company Number: US-US-EMD SERONO, INC.-7132668

PATIENT
  Sex: Female

DRUGS (1)
  1. REBIF [Suspect]
     Indication: MULTIPLE SCLEROSIS
     Route: 058
     Dates: start: 20060306

REACTIONS (4)
  - MUSCULOSKELETAL STIFFNESS [None]
  - HYPERTENSION [None]
  - INTERVERTEBRAL DISC DEGENERATION [None]
  - CHILLS [None]
